FAERS Safety Report 13615668 (Version 1)
Quarter: 2017Q2

REPORT INFORMATION
  Report Type: Spontaneous
  Country: US (occurrence: US)
  Receive Date: 20170606
  Receipt Date: 20170606
  Transmission Date: 20170830
  Serious: No
  Sender: FDA-Public Use
  Company Number: US-PFIZER INC-2016460807

PATIENT
  Sex: Female

DRUGS (1)
  1. XELJANZ XR [Suspect]
     Active Substance: TOFACITINIB CITRATE
     Indication: RHEUMATOID ARTHRITIS
     Dosage: 11 MG, DAILY
     Dates: start: 2016

REACTIONS (10)
  - Myalgia [Unknown]
  - Hypoaesthesia [Unknown]
  - Neck pain [Unknown]
  - Pain [Unknown]
  - Paraesthesia [Unknown]
  - Alopecia [Unknown]
  - Peripheral swelling [Unknown]
  - Back pain [Unknown]
  - Elbow deformity [Unknown]
  - Drug ineffective [Unknown]
